FAERS Safety Report 9908442 (Version 1)
Quarter: 2014Q1

REPORT INFORMATION
  Report Type: Spontaneous
  Country: FR (occurrence: FR)
  Receive Date: 20140219
  Receipt Date: 20140219
  Transmission Date: 20141002
  Serious: Yes (Hospitalization)
  Sender: FDA-Public Use
  Company Number: FR-ROCHE-1351130

PATIENT
  Age: 83 Year
  Sex: Male

DRUGS (8)
  1. VALIUM [Suspect]
     Indication: ALCOHOL WITHDRAWAL SYNDROME
     Route: 048
     Dates: start: 20131217
  2. DEROXAT [Suspect]
     Indication: DEPRESSION
     Route: 048
  3. ZANIDIP [Suspect]
     Indication: HYPERTENSION
     Route: 048
  4. METFORMIN [Concomitant]
     Route: 048
  5. DUPHALAC [Concomitant]
     Route: 048
  6. SPECIAFOLDINE [Concomitant]
     Dosage: 5 MG
     Route: 048
  7. TARDYFERON (FRANCE) [Concomitant]
  8. FRAGMINE [Concomitant]

REACTIONS (2)
  - Somnolence [Recovered/Resolved]
  - Lung disorder [Recovering/Resolving]
